FAERS Safety Report 16527391 (Version 3)
Quarter: 2019Q3

REPORT INFORMATION
  Report Type: Spontaneous
  Country: AU (occurrence: AU)
  Receive Date: 20190704
  Receipt Date: 20190806
  Transmission Date: 20191004
  Serious: Yes (Death)
  Sender: FDA-Public Use
  Company Number: AU-PFIZER INC-2019283645

PATIENT
  Sex: Male
  Weight: 50 kg

DRUGS (5)
  1. TORADOL [Concomitant]
     Active Substance: KETOROLAC TROMETHAMINE
     Dosage: UNK
  2. CELESTONE CHRONODOSE [Concomitant]
     Active Substance: BETAMETHASONE ACETATE\BETAMETHASONE SODIUM PHOSPHATE
     Dosage: UNK
     Route: 030
  3. CELEBREX [Concomitant]
     Active Substance: CELECOXIB
     Indication: RHEUMATOID ARTHRITIS
     Dosage: UNK
  4. METHOTREXATE SODIUM. [Suspect]
     Active Substance: METHOTREXATE SODIUM
     Indication: RHEUMATOID ARTHRITIS
     Dosage: 5 MG, DAILY
  5. METHOTREXATE SODIUM. [Suspect]
     Active Substance: METHOTREXATE SODIUM
     Dosage: 10 MG, DAILY

REACTIONS (11)
  - Product prescribing error [Fatal]
  - Prescribed overdose [Fatal]
  - Diarrhoea [Unknown]
  - Product dispensing error [Fatal]
  - Mouth ulceration [Unknown]
  - Tuberculosis [Fatal]
  - Nausea [Unknown]
  - Respiratory failure [Fatal]
  - Gastrointestinal haemorrhage [Fatal]
  - Urinary tract infection [Unknown]
  - Sepsis [Fatal]
